FAERS Safety Report 5762171-4 (Version None)
Quarter: 2008Q2

REPORT INFORMATION
  Report Type: 
  Country: None (occurrence: None)
  Receive Date: 20080604
  Receipt Date: 20080527
  Transmission Date: 20081010
  Serious: Yes (Life-Threatening)
  Sender: FDA-Public Use
  Company Number: US023642

PATIENT
  Age: 83 Year
  Sex: Male

DRUGS (1)
  1. ARSENIC TRIOXIDE [Suspect]
     Indication: ACUTE MYELOID LEUKAEMIA
     Dosage: 17 MG DAYS 1-5 AND 8-12 QD INTRAVENOUS
     Route: 042
     Dates: start: 20080312, end: 20080425

REACTIONS (2)
  - PLEURAL EFFUSION [None]
  - PNEUMONIA [None]
